FAERS Safety Report 5319160-3 (Version None)
Quarter: 2007Q2

REPORT INFORMATION
  Report Type: 
  Country: None (occurrence: None)
  Receive Date: 20070508
  Receipt Date: 20070427
  Transmission Date: 20071010
  Serious: Yes (Other)
  Sender: FDA-Public Use
  Company Number: US-JNJFOC-20070406540

PATIENT
  Sex: Male
  Weight: 6.12 kg

DRUGS (1)
  1. NIZORAL [Suspect]
     Indication: SEBORRHOEIC DERMATITIS

REACTIONS (1)
  - ALOPECIA [None]
